FAERS Safety Report 17542360 (Version 2)
Quarter: 2020Q2

REPORT INFORMATION
  Report Type: Report from Study
  Country: US (occurrence: US)
  Receive Date: 20200313
  Receipt Date: 20200418
  Transmission Date: 20200713
  Serious: Yes (Death)
  Sender: FDA-Public Use
  Company Number: US-ROCHE-2567558

PATIENT
  Age: 80 Year
  Sex: Male

DRUGS (2)
  1. CELLCEPT [Suspect]
     Active Substance: MYCOPHENOLATE MOFETIL\MYCOPHENOLATE MOFETIL HYDROCHLORIDE
     Indication: TRANSAMINASES INCREASED
     Dosage: 5ML BID
     Route: 065
  2. CELLCEPT [Suspect]
     Active Substance: MYCOPHENOLATE MOFETIL\MYCOPHENOLATE MOFETIL HYDROCHLORIDE
     Indication: BLOOD LACTATE DEHYDROGENASE INCREASED

REACTIONS (2)
  - Squamous cell carcinoma [Fatal]
  - Skin cancer [Fatal]

NARRATIVE: CASE EVENT DATE: 20200216
